FAERS Safety Report 9997291 (Version 1)
Quarter: 2014Q1

REPORT INFORMATION
  Report Type: Spontaneous
  Country: FR (occurrence: FR)
  Receive Date: 20140311
  Receipt Date: 20140311
  Transmission Date: 20141002
  Serious: Yes (Hospitalization)
  Sender: FDA-Public Use
  Company Number: FR-TEVA-465750ISR

PATIENT
  Age: 18 Year
  Sex: Female

DRUGS (2)
  1. DOXORUBICINE TEVA [Suspect]
     Indication: SYNOVIAL SARCOMA
     Route: 041
     Dates: start: 200805
  2. GARDASIL [Suspect]
     Route: 042

REACTIONS (3)
  - Cardiac failure [Unknown]
  - Cardiomyopathy [Unknown]
  - Pulmonary hypertension [Unknown]
